FAERS Safety Report 9691810 (Version 1)
Quarter: 2013Q4

REPORT INFORMATION
  Report Type: Spontaneous
  Country: US (occurrence: US)
  Receive Date: 20131115
  Receipt Date: 20131115
  Transmission Date: 20140711
  Serious: Yes (Other)
  Sender: FDA-Public Use
  Company Number: US-ASTRAZENECA-2013SE82175

PATIENT
  Age: 79 Year
  Sex: Female
  Weight: 70.3 kg

DRUGS (23)
  1. SYMBICORT [Suspect]
     Indication: CHRONIC OBSTRUCTIVE PULMONARY DISEASE
     Dosage: 160/4.5 1 PUFF TWO TIMES A DAY
     Route: 055
  2. SYMBICORT [Suspect]
     Indication: ASTHMA
     Dosage: 160/4.5 1 PUFF TWO TIMES A DAY
     Route: 055
  3. SYMBICORT [Suspect]
     Indication: CHRONIC OBSTRUCTIVE PULMONARY DISEASE
     Dosage: 80/4.5 1 PUFF TWO TIMES A DAY
     Route: 055
     Dates: start: 201310
  4. SYMBICORT [Suspect]
     Indication: ASTHMA
     Dosage: 80/4.5 1 PUFF TWO TIMES A DAY
     Route: 055
     Dates: start: 201310
  5. NEXIUM [Suspect]
     Indication: ULCER
     Route: 048
     Dates: start: 2003
  6. NEXIUM [Suspect]
     Indication: ULCER
     Route: 048
     Dates: start: 2012
  7. MORPHINE [Suspect]
     Indication: BACK PAIN
     Route: 065
  8. BENICAR [Concomitant]
     Indication: BLOOD PRESSURE ABNORMAL
  9. BENICAR/HCT [Concomitant]
     Indication: BLOOD PRESSURE ABNORMAL
     Dosage: 20/12.5
  10. XOPENEX [Concomitant]
     Indication: CHRONIC OBSTRUCTIVE PULMONARY DISEASE
     Dosage: 1 OR 2 PUFFS PRN
  11. XOPENEX [Concomitant]
     Indication: CHRONIC OBSTRUCTIVE PULMONARY DISEASE
     Route: 055
  12. SINGULAIR [Concomitant]
  13. OXYBUTYNIN CHLORIDE [Concomitant]
     Indication: ILL-DEFINED DISORDER
     Dates: start: 2012
  14. SPRIVA [Concomitant]
     Indication: CHRONIC OBSTRUCTIVE PULMONARY DISEASE
  15. FLINTSONE VITAMIN WITH IRON [Concomitant]
     Indication: VITAMIN SUPPLEMENTATION
     Dosage: 1 DAILY
  16. VIACTIV [Concomitant]
     Indication: MINERAL SUPPLEMENTATION
     Dosage: 1 DAILY
  17. IRON [Concomitant]
     Indication: MINERAL SUPPLEMENTATION
     Dosage: DAILY
  18. PRADAXA [Concomitant]
     Indication: ATRIAL FIBRILLATION
  19. LANOXIN [Concomitant]
  20. THEOPHYLLINE [Concomitant]
     Dates: start: 2013
  21. CARDIZEM [Concomitant]
     Dates: start: 201309
  22. BUMEX [Concomitant]
     Indication: DIURETIC THERAPY
     Dates: start: 2011
  23. MARYS MAGIC MOUTHWASH [Concomitant]
     Indication: CANDIDA INFECTION

REACTIONS (15)
  - Myocardial infarction [Unknown]
  - Atrial fibrillation [Unknown]
  - Haemoglobin decreased [Unknown]
  - Candida infection [Unknown]
  - Abnormal behaviour [Unknown]
  - Aphagia [Unknown]
  - Gingival discolouration [Unknown]
  - Oral discomfort [Unknown]
  - Hypophagia [Unknown]
  - Body height decreased [Unknown]
  - Weight decreased [Unknown]
  - Back pain [Unknown]
  - Aggression [Unknown]
  - Off label use [Unknown]
  - Intentional drug misuse [Unknown]
